FAERS Safety Report 11575904 (Version 1)
Quarter: 2015Q3

REPORT INFORMATION
  Report Type: Spontaneous
  Country: US (occurrence: None)
  Receive Date: 20150929
  Receipt Date: 20150929
  Transmission Date: 20151125
  Serious: Yes (Disabling)
  Sender: FDA-Public Use
  Company Number: None

PATIENT
  Age: 72 Year
  Sex: Female
  Weight: 57.61 kg

DRUGS (7)
  1. DIOVAN [Concomitant]
     Active Substance: VALSARTAN
  2. VALSARTAN (GENERIC FOR DIOVAN) QUALITEST [Suspect]
     Active Substance: VALSARTAN
     Indication: PRODUCT USED FOR UNKNOWN INDICATION
     Dosage: 320 MG?1/2 PILL?DAILY?BY MOUTH
     Route: 048
     Dates: start: 20150916, end: 20150916
  3. CLONIDINE. [Concomitant]
     Active Substance: CLONIDINE
  4. MAXZIDE [Concomitant]
     Active Substance: HYDROCHLOROTHIAZIDE\TRIAMTERENE
  5. VITAMIN C [Concomitant]
     Active Substance: ASCORBIC ACID
  6. PREMARIN [Concomitant]
     Active Substance: ESTROGENS, CONJUGATED
  7. MULTI-VITAMIN [Concomitant]
     Active Substance: .ALPHA.-TOCOPHEROL ACETATE, DL-\ASCORBIC ACID\CYANOCOBALAMIN\FLUORIDE ION\FOLIC ACID\NIACIN\PYRIDOXINE\RIBOFLAVIN\THIAMINE\VITAMIN A\VITAMIN D

REACTIONS (10)
  - Sensory disturbance [None]
  - Pain in extremity [None]
  - Dizziness [None]
  - Paraesthesia [None]
  - Malaise [None]
  - Disorientation [None]
  - Cardiac flutter [None]
  - Dry mouth [None]
  - Joint swelling [None]
  - Cerebral disorder [None]

NARRATIVE: CASE EVENT DATE: 20150916
